FAERS Safety Report 15851877 (Version 1)
Quarter: 2019Q1

REPORT INFORMATION
  Report Type: Spontaneous
  Country: US (occurrence: US)
  Receive Date: 20190122
  Receipt Date: 20190122
  Transmission Date: 20190417
  Serious: No
  Sender: FDA-Public Use
  Company Number: US-MACLEODS PHARMACEUTICALS US LTD-MAC2019019546

PATIENT

DRUGS (1)
  1. CLOBETASOL TOPICAL SOLUTION [Suspect]
     Active Substance: CLOBETASOL
     Indication: SKIN DISORDER
     Dosage: UNK
     Route: 061
     Dates: start: 20181217

REACTIONS (3)
  - Lip swelling [Recovered/Resolved]
  - Eye swelling [Recovered/Resolved]
  - Skin burning sensation [Recovered/Resolved]
